FAERS Safety Report 25651606 (Version 2)
Quarter: 2025Q3

REPORT INFORMATION
  Report Type: Report from Study
  Country: CN (occurrence: CN)
  Receive Date: 20250806
  Receipt Date: 20250821
  Transmission Date: 20251020
  Serious: Yes (Hospitalization)
  Sender: EISAI
  Company Number: CN-Eisai-EC-2025-194174

PATIENT
  Age: 72 Year
  Sex: Male
  Weight: 58 kg

DRUGS (8)
  1. LENVATINIB [Suspect]
     Active Substance: LENVATINIB
     Indication: Hepatocellular carcinoma
     Dates: start: 20230609, end: 20230808
  2. DURVALUMAB [Suspect]
     Active Substance: DURVALUMAB
     Indication: Hepatocellular carcinoma
     Dates: start: 20230609, end: 20240612
  3. TREMELIMUMAB [Suspect]
     Active Substance: TREMELIMUMAB
     Indication: Hepatocellular carcinoma
     Dates: start: 20230609, end: 20230609
  4. ENTECAVIR [Concomitant]
     Active Substance: ENTECAVIR
  5. TENOFOVIR [Concomitant]
     Active Substance: TENOFOVIR
  6. ADEMETIONINE [Concomitant]
     Active Substance: ADEMETIONINE
  7. BICYCLOL [Concomitant]
     Active Substance: BICYCLOL
  8. ILAPRAZOLE [Concomitant]
     Active Substance: ILAPRAZOLE

REACTIONS (2)
  - Psoriasis [Recovered/Resolved]
  - Palmar-plantar erythrodysaesthesia syndrome [Recovered/Resolved]

NARRATIVE: CASE EVENT DATE: 20240515
